FAERS Safety Report 5834441-2 (Version None)
Quarter: 2008Q3

REPORT INFORMATION
  Report Type: 
  Country: None (occurrence: None)
  Receive Date: 20080805
  Receipt Date: 20080731
  Transmission Date: 20090109
  Serious: Yes (Other)
  Sender: FDA-Public Use
  Company Number: US-BOEHRINGER INGELHEIM GMBH, GERMANY-2008-BP-11995RO

PATIENT
  Age: 31 Year
  Sex: Female

DRUGS (7)
  1. CYCLOPHOSPHAMIDE [Suspect]
     Indication: FOLLICLE CENTRE LYMPHOMA, FOLLICULAR GRADE I, II, III STAGE III
     Dates: start: 19990101
  2. FLUDARABINE PHOSPHATE [Suspect]
     Indication: FOLLICLE CENTRE LYMPHOMA, FOLLICULAR GRADE I, II, III STAGE III
     Dates: start: 19990101
  3. RITUXIMAB [Suspect]
     Indication: FOLLICLE CENTRE LYMPHOMA, FOLLICULAR GRADE I, II, III STAGE III
     Dates: start: 19990101
  4. CORTICOSTEROIDS [Concomitant]
     Indication: SINUSITIS
     Route: 045
  5. CORTICOSTEROIDS [Concomitant]
     Route: 055
  6. IMMUNE GLOBULIN INTRAVENOUS (HUMAN) [Concomitant]
     Indication: HYPOGAMMAGLOBULINAEMIA
     Route: 042
  7. ANTIBIOTIC [Concomitant]
     Indication: SINUSITIS

REACTIONS (5)
  - CD4 LYMPHOCYTES DECREASED [None]
  - CD8 LYMPHOCYTES DECREASED [None]
  - HYPOGAMMAGLOBULINAEMIA [None]
  - SINUSITIS [None]
  - T-LYMPHOCYTE COUNT DECREASED [None]
